FAERS Safety Report 4911748-4 (Version None)
Quarter: 2006Q1

REPORT INFORMATION
  Report Type: 
  Country: None (occurrence: None)
  Receive Date: 20060215
  Receipt Date: 20060206
  Transmission Date: 20060701
  Serious: Yes (Life-Threatening, Hospitalization)
  Sender: FDA-Public Use
  Company Number: LT-JNJFOC-20060200104

PATIENT
  Age: 52 Year
  Sex: Female
  Weight: 76 kg

DRUGS (5)
  1. REMICADE [Suspect]
     Indication: RHEUMATOID ARTHRITIS
     Dosage: 7 INFUSIONS
     Route: 042
  2. MEDROL [Concomitant]
     Route: 065
  3. IMURAN [Concomitant]
     Route: 065
  4. CELEBREX [Concomitant]
     Route: 065
  5. MONOPRIL [Concomitant]
     Route: 065

REACTIONS (1)
  - DIVERTICULITIS [None]
